FAERS Safety Report 25588349 (Version 1)
Quarter: 2025Q3

REPORT INFORMATION
  Report Type: Spontaneous
  Country: US (occurrence: US)
  Receive Date: 20250722
  Receipt Date: 20250722
  Transmission Date: 20251020
  Serious: No
  Sender: ENDO
  Company Number: US-ENDO USA, INC.-2024-050888

PATIENT
  Sex: Male

DRUGS (3)
  1. EDEX [Suspect]
     Active Substance: ALPROSTADIL
     Indication: Erectile dysfunction
     Route: 065
     Dates: start: 2024
  2. EDEX [Suspect]
     Active Substance: ALPROSTADIL
     Route: 065
     Dates: start: 2024
  3. EDEX [Suspect]
     Active Substance: ALPROSTADIL
     Route: 065

REACTIONS (4)
  - Procedural pain [Unknown]
  - Drug effect less than expected [Unknown]
  - Incorrect dose administered [Unknown]
  - Needle issue [None]

NARRATIVE: CASE EVENT DATE: 20240101
